FAERS Safety Report 26136727 (Version 2)
Quarter: 2025Q4

REPORT INFORMATION
  Report Type: Spontaneous
  Country: JO (occurrence: JO)
  Receive Date: 20251209
  Receipt Date: 20251216
  Transmission Date: 20260118
  Serious: Yes (Hospitalization, Disabling, Other)
  Sender: NOVARTIS
  Company Number: JO-002147023-NVSC2025JO146172

PATIENT
  Age: 50 Year
  Sex: Female

DRUGS (2)
  1. BEOVU [Suspect]
     Active Substance: BROLUCIZUMAB-DBLL
     Indication: Diabetic retinal oedema
     Dosage: UNK
     Route: 031
     Dates: start: 202501
  2. BEOVU [Suspect]
     Active Substance: BROLUCIZUMAB-DBLL
     Dosage: UNK
     Route: 065
     Dates: start: 20250716

REACTIONS (17)
  - Retinal vasculitis [Not Recovered/Not Resolved]
  - Iridocyclitis [Not Recovered/Not Resolved]
  - Blindness [Not Recovered/Not Resolved]
  - Vasculitis [Unknown]
  - Vitritis [Not Recovered/Not Resolved]
  - Vision blurred [Unknown]
  - Macular oedema [Unknown]
  - Macular ischaemia [Unknown]
  - Optic atrophy [Not Recovered/Not Resolved]
  - Epiretinal membrane [Unknown]
  - Lid sulcus deepened [Unknown]
  - Cataract nuclear [Unknown]
  - Retinal ischaemia [Not Recovered/Not Resolved]
  - Retinal artery occlusion [Not Recovered/Not Resolved]
  - Eye discharge [Not Recovered/Not Resolved]
  - Optic disc disorder [Not Recovered/Not Resolved]
  - Intraocular pressure increased [Unknown]

NARRATIVE: CASE EVENT DATE: 20250726
